FAERS Safety Report 9739101 (Version 2)
Quarter: 2013Q4

REPORT INFORMATION
  Report Type: Spontaneous
  Country: JP (occurrence: JP)
  Receive Date: 20131209
  Receipt Date: 20131212
  Transmission Date: 20140711
  Serious: Yes (Other)
  Sender: FDA-Public Use
  Company Number: JP-ASTRAZENECA-2013SE87967

PATIENT
  Age: 43 Year
  Sex: Female

DRUGS (1)
  1. CARBOCAIN [Suspect]
     Indication: NERVE BLOCK
     Route: 053

REACTIONS (1)
  - Horner^s syndrome [Unknown]
